FAERS Safety Report 6697314-1 (Version None)
Quarter: 2010Q2

REPORT INFORMATION
  Report Type: 
  Country: None (occurrence: None)
  Receive Date: 20100426
  Receipt Date: 20100415
  Transmission Date: 20101027
  Serious: Yes (Other)
  Sender: FDA-Public Use
  Company Number: HU-ASTRAZENECA-2010SE17234

PATIENT
  Age: 29622 Day
  Sex: Male

DRUGS (9)
  1. CRESTOR [Suspect]
     Indication: ASTHMA
     Route: 048
     Dates: start: 20090114, end: 20100114
  2. CRESTOR [Suspect]
     Route: 048
  3. BETALOC ZOK [Concomitant]
  4. VEROSPIRON [Concomitant]
  5. PLAVIX [Concomitant]
  6. NOOTROPIL [Concomitant]
  7. CAVINTON [Concomitant]
  8. SILDENAFIL [Concomitant]
     Dosage: OCCASIONALLY
  9. VITAMIN C [Concomitant]
     Dosage: OCCASIONALLY

REACTIONS (1)
  - ENZYME ABNORMALITY [None]
